FAERS Safety Report 18559803 (Version 2)
Quarter: 2021Q1

REPORT INFORMATION
  Report Type: Spontaneous
  Country: US (occurrence: US)
  Receive Date: 20201130
  Receipt Date: 20210318
  Transmission Date: 20210419
  Serious: Yes (Other)
  Sender: FDA-Public Use
  Company Number: US-PFIZER INC-2020468250

PATIENT
  Age: 78 Year
  Sex: Male
  Weight: 82.99 kg

DRUGS (2)
  1. LIPITOR [Suspect]
     Active Substance: ATORVASTATIN CALCIUM
     Indication: HYPERCHOLESTEROLAEMIA
     Dosage: UNK
     Dates: start: 20161213
  2. CADUET [Suspect]
     Active Substance: AMLODIPINE BESYLATE\ATORVASTATIN CALCIUM
     Indication: HYPERTENSION
     Dosage: 1 DF, DAILY (1 TABLET EVERY DAY)
     Route: 048

REACTIONS (7)
  - Haematuria [Unknown]
  - Colon adenoma [Unknown]
  - Lower urinary tract symptoms [Unknown]
  - Bladder diverticulum [Unknown]
  - Renal cyst [Unknown]
  - Neuropathy peripheral [Unknown]
  - Benign prostatic hyperplasia [Unknown]
